FAERS Safety Report 6347763-6 (Version None)
Quarter: 2009Q3

REPORT INFORMATION
  Report Type: 
  Country: None (occurrence: None)
  Receive Date: 20090910
  Receipt Date: 20090901
  Transmission Date: 20100115
  Serious: Yes (Hospitalization)
  Sender: FDA-Public Use
  Company Number: A0805511A

PATIENT
  Age: 79 Year
  Sex: Male

DRUGS (11)
  1. AVANDIA [Suspect]
     Indication: DIABETES MELLITUS
     Dosage: 4MG TWICE PER DAY
     Route: 048
     Dates: start: 19990901, end: 20071101
  2. BYETTA [Concomitant]
  3. HUMALOG [Concomitant]
  4. PRANDIN [Concomitant]
  5. LEVOTHROID [Concomitant]
  6. AMITRIPTYLINE [Concomitant]
  7. ALTACE [Concomitant]
  8. HYZAAR [Concomitant]
  9. ZETIA [Concomitant]
  10. ALLEGRA [Concomitant]
  11. LEVEMIR [Concomitant]

REACTIONS (4)
  - ATRIAL FIBRILLATION [None]
  - ATRIOVENTRICULAR DISSOCIATION [None]
  - CARDIAC FAILURE CONGESTIVE [None]
  - VASCULAR GRAFT [None]
